FAERS Safety Report 23167987 (Version 1)
Quarter: 2023Q4

REPORT INFORMATION
  Report Type: Spontaneous
  Country: US (occurrence: US)
  Receive Date: 20231109
  Receipt Date: 20231109
  Transmission Date: 20240109
  Serious: No
  Sender: FDA-Public Use
  Company Number: US-SA-SAC20231107000685

PATIENT

DRUGS (2)
  1. CLOPIDOGREL BESILATE [Suspect]
     Active Substance: CLOPIDOGREL BESILATE
     Dosage: UNK
  2. VYNDAMAX [Concomitant]
     Active Substance: TAFAMIDIS
     Dosage: UNK

REACTIONS (4)
  - Dyspnoea [Unknown]
  - Depression [Unknown]
  - Gout [Unknown]
  - Contusion [Unknown]
